FAERS Safety Report 18032750 (Version 4)
Quarter: 2020Q3

REPORT INFORMATION
  Report Type: Spontaneous
  Country: US (occurrence: US)
  Receive Date: 20200716
  Receipt Date: 20200810
  Transmission Date: 20201103
  Serious: Yes (Hospitalization, Other)
  Sender: FDA-Public Use
  Company Number: US-GLAXOSMITHKLINE-US2020AMR131743

PATIENT
  Sex: Female

DRUGS (2)
  1. ZEJULA [Suspect]
     Active Substance: NIRAPARIB
     Indication: OVARIAN CANCER
     Dosage: 300 MG, QD
     Dates: start: 20200701
  2. ZEJULA [Suspect]
     Active Substance: NIRAPARIB
     Dosage: 250 MG, QD

REACTIONS (5)
  - Platelet count decreased [Unknown]
  - Nausea [Unknown]
  - Constipation [Unknown]
  - Blood count abnormal [Unknown]
  - Pneumonia [Unknown]
